FAERS Safety Report 14985076 (Version 1)
Quarter: 2018Q2

REPORT INFORMATION
  Report Type: Spontaneous
  Country: US (occurrence: US)
  Receive Date: 20180607
  Receipt Date: 20180607
  Transmission Date: 20180711
  Serious: No
  Sender: FDA-Public Use
  Company Number: US-PFIZER INC-2018011058

PATIENT
  Age: 67 Year
  Sex: Female

DRUGS (2)
  1. DOCETAXEL. [Suspect]
     Active Substance: DOCETAXEL
     Indication: BREAST CANCER
     Dosage: EVERY THREE WEEKS
     Dates: start: 2012
  2. TAXOTERE [Suspect]
     Active Substance: DOCETAXEL
     Indication: BREAST CANCER
     Dosage: EVERY THREE WEEKS
     Dates: start: 2012

REACTIONS (5)
  - Alopecia [Unknown]
  - Hair colour changes [Unknown]
  - Madarosis [Unknown]
  - Hair disorder [Unknown]
  - Hair texture abnormal [Unknown]
